FAERS Safety Report 6607925-7 (Version None)
Quarter: 2010Q1

REPORT INFORMATION
  Report Type: 
  Country: None (occurrence: None)
  Receive Date: 20100225
  Receipt Date: 20100225
  Transmission Date: 20100710
  Serious: No
  Sender: FDA-Public Use
  Company Number: None

PATIENT
  Age: 61 Year
  Sex: Male
  Weight: 78.9 kg

DRUGS (1)
  1. CLINDAMYCIN [Suspect]
     Dates: start: 20090917, end: 20090920

REACTIONS (1)
  - ERYTHEMA MULTIFORME [None]
